FAERS Safety Report 12171361 (Version 2)
Quarter: 2016Q2

REPORT INFORMATION
  Report Type: Spontaneous
  Country: US (occurrence: US)
  Receive Date: 20160311
  Receipt Date: 20160531
  Transmission Date: 20160815
  Serious: No
  Sender: FDA-Public Use
  Company Number: US-PFIZER INC-2016143885

PATIENT
  Age: 8 Year
  Sex: Male

DRUGS (1)
  1. GENOTROPIN [Suspect]
     Active Substance: SOMATROPIN
     Dosage: 1 MG, 1X/DAY
     Route: 058
     Dates: start: 20160211

REACTIONS (5)
  - Injection site bruising [Unknown]
  - Weight decreased [Unknown]
  - Drug administration error [Unknown]
  - Headache [Unknown]
  - Condition aggravated [Unknown]
